FAERS Safety Report 16441170 (Version 1)
Quarter: 2019Q2

REPORT INFORMATION
  Report Type: Spontaneous
  Country: ES (occurrence: ES)
  Receive Date: 20190617
  Receipt Date: 20190617
  Transmission Date: 20190711
  Serious: Yes (Life-Threatening, Hospitalization)
  Sender: FDA-Public Use
  Company Number: ES-TEVA-2019-ES-1063224

PATIENT
  Age: 88 Year
  Sex: Female

DRUGS (9)
  1. ATORVASTATINA (7400A) [Concomitant]
     Active Substance: ATORVASTATIN
     Indication: DYSLIPIDAEMIA
     Route: 048
     Dates: start: 20161007
  2. BISOPROLOL (2328A) [Concomitant]
     Active Substance: BISOPROLOL
     Route: 048
     Dates: start: 20190306
  3. APIXABAN (8472A) [Concomitant]
     Active Substance: APIXABAN
     Indication: ATRIAL FIBRILLATION
     Route: 048
     Dates: start: 20190306
  4. FENTANILO (1543A) [Concomitant]
     Active Substance: FENTANYL
     Indication: PAIN
     Dates: start: 20190306
  5. SIMVASTATINA (1023A) [Concomitant]
     Active Substance: SIMVASTATIN
     Dates: start: 20190306
  6. PANTOPRAZOL (7275A) [Concomitant]
     Active Substance: PANTOPRAZOLE
     Dates: start: 20190311
  7. PROLIA [Concomitant]
     Active Substance: DENOSUMAB
     Indication: THORACIC VERTEBRAL FRACTURE
     Dosage: 60 MG PER 6 MONTHS
     Route: 058
     Dates: start: 20190306
  8. ENALAPRIL (2142A) [Suspect]
     Active Substance: ENALAPRIL
     Route: 048
     Dates: start: 20190501, end: 20190521
  9. PARACETAMOL (12A) [Concomitant]
     Active Substance: ACETAMINOPHEN
     Route: 048
     Dates: start: 20161007

REACTIONS (3)
  - Acute respiratory failure [Recovered/Resolved]
  - Palatal oedema [Recovered/Resolved]
  - Angioedema [Recovered/Resolved]

NARRATIVE: CASE EVENT DATE: 20190521
